FAERS Safety Report 6299906-0 (Version None)
Quarter: 2009Q3

REPORT INFORMATION
  Report Type: 
  Country: None (occurrence: None)
  Receive Date: 20090804
  Receipt Date: 20090723
  Transmission Date: 20100115
  Serious: Yes (Other)
  Sender: FDA-Public Use
  Company Number: US-1169817

PATIENT
  Age: 50 Year
  Sex: Female
  Weight: 48.5349 kg

DRUGS (1)
  1. PREDNISOLONE ACETATE [Suspect]
     Indication: UVEITIS
     Dosage: (1 GGT OU TID OPHTHALMIC)
     Route: 047
     Dates: start: 20090417

REACTIONS (5)
  - EYELID PTOSIS [None]
  - MYASTHENIA GRAVIS [None]
  - RETINAL DETACHMENT [None]
  - RETINAL TEAR [None]
  - WEIGHT DECREASED [None]
